FAERS Safety Report 8331690-9 (Version None)
Quarter: 2012Q2

REPORT INFORMATION
  Report Type: 
  Country: None (occurrence: None)
  Receive Date: 20120502
  Receipt Date: 20120103
  Transmission Date: 20120825
  Serious: No
  Sender: FDA-Public Use
  Company Number: US-ASTRAZENECA-2012SE00439

PATIENT
  Sex: Female

DRUGS (2)
  1. ENTOCORT EC [Suspect]
     Indication: ABDOMINAL PAIN UPPER
     Route: 048
  2. ENTOCORT EC [Suspect]
     Indication: DIARRHOEA
     Route: 048

REACTIONS (4)
  - DIARRHOEA [None]
  - OFF LABEL USE [None]
  - CROHN'S DISEASE [None]
  - DRUG DOSE OMISSION [None]
